FAERS Safety Report 12715692 (Version 1)
Quarter: 2016Q3

REPORT INFORMATION
  Report Type: Spontaneous
  Country: IT (occurrence: IT)
  Receive Date: 20160906
  Receipt Date: 20160906
  Transmission Date: 20161109
  Serious: Yes (Other)
  Sender: FDA-Public Use
  Company Number: IT-ACCORD-043568

PATIENT
  Age: 86 Year
  Sex: Female

DRUGS (4)
  1. TRIATEC [Concomitant]
     Active Substance: RAMIPRIL
     Indication: PRODUCT USED FOR UNKNOWN INDICATION
     Dosage: STRENGTH: 5 MG
     Route: 048
  2. TRITTICO [Suspect]
     Active Substance: TRAZODONE HYDROCHLORIDE
     Indication: CONDUCT DISORDER
     Dosage: STRENGTH: 60 MG/ML
     Route: 048
     Dates: start: 20160101, end: 20160707
  3. TALOFEN [Suspect]
     Active Substance: PROMAZINE HYDROCHLORIDE
     Indication: CONDUCT DISORDER
     Dosage: STRENGTH: 4 G/100 ML
     Route: 048
     Dates: start: 20160101, end: 20160707
  4. QUETIAPINE. [Suspect]
     Active Substance: QUETIAPINE
     Indication: CONDUCT DISORDER
     Route: 048
     Dates: start: 20160101, end: 20160707

REACTIONS (4)
  - Dysstasia [Unknown]
  - Language disorder [Unknown]
  - Agitation [Unknown]
  - Sopor [Unknown]

NARRATIVE: CASE EVENT DATE: 20160707
